APPROVED DRUG PRODUCT: JENTADUETO XR
Active Ingredient: LINAGLIPTIN; METFORMIN HYDROCHLORIDE
Strength: 2.5MG;1GM
Dosage Form/Route: TABLET, EXTENDED RELEASE;ORAL
Application: N208026 | Product #001
Applicant: BOEHRINGER INGELHEIM PHARMACEUTICALS INC
Approved: May 27, 2016 | RLD: Yes | RS: No | Type: RX

PATENTS:
Patent 9555001 | Expires: Mar 6, 2033
Patent 10022379 | Expires: Apr 2, 2029
Patent 9555001 | Expires: Mar 6, 2033
Patent 12364700 | Expires: Jun 8, 2037
Patent 9173859 | Expires: May 4, 2027
Patent 8673927 | Expires: May 4, 2027
Patent 11911388 | Expires: Apr 10, 2030
Patent 9415016 | Expires: Apr 2, 2029
Patent 8883805 | Expires: Nov 26, 2025
Patent 9155705 | Expires: May 21, 2030
Patent 9555001*PED | Expires: Sep 6, 2033
Patent 10022379*PED | Expires: Oct 2, 2029
Patent 9415016*PED | Expires: Oct 2, 2029
Patent 9173859*PED | Expires: Nov 4, 2027
Patent 8673927*PED | Expires: Nov 4, 2027
Patent 9155705*PED | Expires: Nov 21, 2030
Patent 8883805*PED | Expires: May 26, 2026
Patent 12364700*PED | Expires: Dec 8, 2037

EXCLUSIVITY:
Code: M-295 | Date: Jun 20, 2026
Code: PED | Date: Dec 20, 2026